FAERS Safety Report 4899531-X (Version None)
Quarter: 2006Q1

REPORT INFORMATION
  Report Type: 
  Country: None (occurrence: None)
  Receive Date: 20060118
  Receipt Date: 20050510
  Transmission Date: 20060701
  Serious: No
  Sender: FDA-Public Use
  Company Number: 2005000908

PATIENT
  Age: 85 Year
  Sex: Male
  Weight: 82.3279 kg

DRUGS (10)
  1. TARCEVA [Suspect]
     Indication: NON-SMALL CELL LUNG CANCER
     Dosage: 150 MG (QD), ORAL
     Route: 048
     Dates: start: 20050401, end: 20050601
  2. CLINDAMYCIN [Concomitant]
  3. NEURONTIN [Concomitant]
  4. POTASSIUM (POTASSIUM) [Concomitant]
  5. TRAZODONE HCL [Concomitant]
  6. LEVODOPA (LEVODOPA) [Concomitant]
  7. CARBIDOPA (CARBIDOPA) [Concomitant]
  8. PEPCID [Concomitant]
  9. FUROSEMIDE [Concomitant]
  10. DIAZEPAM [Concomitant]

REACTIONS (5)
  - BACK PAIN [None]
  - BLOOD URINE PRESENT [None]
  - NAUSEA [None]
  - RASH PRURITIC [None]
  - RENAL IMPAIRMENT [None]
